FAERS Safety Report 5897483-7 (Version None)
Quarter: 2008Q3

REPORT INFORMATION
  Report Type: 
  Country: None (occurrence: None)
  Receive Date: 20080925
  Receipt Date: 20080922
  Transmission Date: 20090109
  Serious: Yes (Death)
  Sender: FDA-Public Use
  Company Number: US-BRISTOL-MYERS SQUIBB COMPANY-14342513

PATIENT
  Age: 56 Year
  Sex: Male

DRUGS (4)
  1. METFORMIN HCL [Suspect]
     Indication: TYPE 2 DIABETES MELLITUS
  2. PANTOPRAZOLE SODIUM [Concomitant]
  3. LEVOTHYROXINE SODIUM [Concomitant]
  4. GLYBURIDE [Concomitant]

REACTIONS (1)
  - HAEMOLYTIC ANAEMIA [None]
